FAERS Safety Report 10079965 (Version 1)
Quarter: 2014Q2

REPORT INFORMATION
  Report Type: Spontaneous
  Country: US (occurrence: US)
  Receive Date: 20140415
  Receipt Date: 20140415
  Transmission Date: 20141212
  Serious: No
  Sender: FDA-Public Use
  Company Number: US-ASTRAZENECA-2014SE20981

PATIENT
  Age: 68 Year
  Sex: Female
  Weight: 87.1 kg

DRUGS (9)
  1. SYMBICORT [Suspect]
     Indication: ASTHMA
     Dosage: 320MCG BID
     Route: 055
     Dates: start: 2010
  2. OMEPRAZOLE OTC [Suspect]
     Indication: GASTROOESOPHAGEAL REFLUX DISEASE
     Route: 048
  3. VENTOLIN HFA [Concomitant]
     Indication: ASTHMA
     Dosage: 90MCG PRN
     Route: 055
     Dates: start: 2013
  4. EXCEDRIN (GENERIC) [Concomitant]
     Indication: ARTHRITIS
     Dosage: BID
     Route: 048
     Dates: start: 2012
  5. HYDROCODONE [Concomitant]
     Indication: PAIN
     Dosage: BID
     Route: 048
     Dates: start: 2012
  6. ACETAMINOPHEN [Concomitant]
     Indication: PAIN
     Dosage: BID
     Route: 048
     Dates: start: 2012
  7. GABAPENTIN [Concomitant]
     Indication: NEUROPATHY PERIPHERAL
     Route: 048
  8. PRAMIPEXOLE [Concomitant]
     Indication: RESTLESS LEGS SYNDROME
     Dosage: .25 HS
     Route: 048
     Dates: start: 2011
  9. LANTIS [Concomitant]
     Indication: DIABETES MELLITUS
     Route: 058

REACTIONS (11)
  - Sinusitis [Recovering/Resolving]
  - Inflammation [Recovering/Resolving]
  - Swelling [Recovering/Resolving]
  - Pain in extremity [Recovering/Resolving]
  - Chills [Recovering/Resolving]
  - Memory impairment [Not Recovered/Not Resolved]
  - Dementia Alzheimer^s type [Not Recovered/Not Resolved]
  - Tremor [Not Recovered/Not Resolved]
  - Muscle spasms [Recovering/Resolving]
  - Incorrect product storage [Unknown]
  - Intentional product misuse [Not Recovered/Not Resolved]
